FAERS Safety Report 17351685 (Version 1)
Quarter: 2020Q1

REPORT INFORMATION
  Report Type: Report from Study
  Country: US (occurrence: US)
  Receive Date: 20200130
  Receipt Date: 20200130
  Transmission Date: 20200409
  Serious: Yes (Life-Threatening, Hospitalization)
  Sender: FDA-Public Use
  Company Number: US-PFIZER INC-2020039732

PATIENT
  Age: 19 Year
  Sex: Male
  Weight: 103.5 kg

DRUGS (12)
  1. METHOTREXATE SODIUM. [Suspect]
     Active Substance: METHOTREXATE SODIUM
     Dosage: UNK
     Route: 042
     Dates: start: 20191029, end: 20191118
  2. INCB018424 [Suspect]
     Active Substance: RUXOLITINIB
     Dosage: 110 MG, BID, CYCLIC
     Route: 048
     Dates: start: 20191126
  3. PEGASPARGASE [Suspect]
     Active Substance: PEGASPARGASE
     Dosage: IU/M2
     Route: 042
     Dates: start: 20191126
  4. METHOTREXATE SODIUM. [Suspect]
     Active Substance: METHOTREXATE SODIUM
     Indication: B PRECURSOR TYPE ACUTE LEUKAEMIA
     Dosage: UNK
     Route: 042
     Dates: start: 20190218
  5. VINCRISTINE SULFATE. [Suspect]
     Active Substance: VINCRISTINE SULFATE
     Indication: B PRECURSOR TYPE ACUTE LEUKAEMIA
     Dosage: UNK
     Route: 042
     Dates: start: 20190218
  6. METHOTREXATE SODIUM. [Suspect]
     Active Substance: METHOTREXATE SODIUM
     Dosage: UNK
     Route: 042
     Dates: start: 20191126
  7. VINCRISTINE SULFATE. [Suspect]
     Active Substance: VINCRISTINE SULFATE
     Dosage: UNK
     Route: 042
     Dates: start: 20191029, end: 20191118
  8. INCB018424 [Suspect]
     Active Substance: RUXOLITINIB
     Indication: B PRECURSOR TYPE ACUTE LEUKAEMIA
     Dosage: 110 MG, BID
     Route: 048
     Dates: start: 20190218
  9. INCB018424 [Suspect]
     Active Substance: RUXOLITINIB
     Dosage: 110 MG, BID
     Route: 048
     Dates: start: 20191029, end: 20191118
  10. PEGASPARGASE [Suspect]
     Active Substance: PEGASPARGASE
     Indication: B PRECURSOR TYPE ACUTE LEUKAEMIA
     Dosage: IU/M2
     Route: 042
     Dates: start: 20190218
  11. VINCRISTINE SULFATE. [Suspect]
     Active Substance: VINCRISTINE SULFATE
     Dosage: UNK
     Route: 042
     Dates: start: 20191126
  12. PEGASPARGASE [Suspect]
     Active Substance: PEGASPARGASE
     Dosage: IU/M2
     Route: 042
     Dates: start: 20191029, end: 20191118

REACTIONS (3)
  - Pyrexia [Recovered/Resolved]
  - Pyrexia [Recovered/Resolved]
  - Colitis [Recovered/Resolved]

NARRATIVE: CASE EVENT DATE: 20191027
